FAERS Safety Report 12495591 (Version 1)
Quarter: 2016Q2

REPORT INFORMATION
  Report Type: Report from Study
  Country: DE (occurrence: DE)
  Receive Date: 20160624
  Receipt Date: 20160624
  Transmission Date: 20160815
  Serious: Yes (Hospitalization)
  Sender: FDA-Public Use
  Company Number: DE-BIOGEN-2016BI00245842

PATIENT
  Age: 45 Year
  Sex: Female

DRUGS (2)
  1. VOMEX A [Concomitant]
     Active Substance: DIMENHYDRINATE
     Indication: NAUSEA
     Route: 065
  2. TECFIDERA [Suspect]
     Active Substance: DIMETHYL FUMARATE
     Indication: MULTIPLE SCLEROSIS
     Dosage: MAINTENENCE DOSE
     Route: 048
     Dates: start: 20140325

REACTIONS (2)
  - Nausea [Not Recovered/Not Resolved]
  - Haemorrhoids thrombosed [Unknown]

NARRATIVE: CASE EVENT DATE: 201605
